FAERS Safety Report 6100189-2 (Version None)
Quarter: 2009Q1

REPORT INFORMATION
  Report Type: 
  Country: None (occurrence: None)
  Receive Date: 20090303
  Receipt Date: 20090217
  Transmission Date: 20090719
  Serious: Yes (Hospitalization, Other)
  Sender: FDA-Public Use
  Company Number: GB-ROCHE-608631

PATIENT
  Sex: Female
  Weight: 110.2 kg

DRUGS (14)
  1. ORLISTAT [Suspect]
     Indication: OBESITY
     Dosage: OTHER INDICATION REPORTED AS: INSULIN-DEPENDENT DIABETES MELLITUS (IDDM).
     Route: 048
     Dates: start: 20080819, end: 20081201
  2. METFORMIN HCL [Suspect]
     Route: 048
     Dates: end: 20081201
  3. ALENDRONIC ACID [Concomitant]
     Indication: OSTEOPENIA
     Route: 048
     Dates: start: 20040412
  4. ADCAL D3 [Concomitant]
     Indication: OSTEOPOROSIS
     Route: 048
  5. AMLODIPINE [Concomitant]
     Indication: ESSENTIAL HYPERTENSION
     Route: 048
     Dates: start: 20080312
  6. CO-DYDRAMOL [Concomitant]
     Dosage: DOSAGE REGIME: 1-2 FOUR TIMES DAILY.
     Route: 048
     Dates: start: 20000101
  7. FRUSEMIDE [Concomitant]
     Indication: HYPERTENSIVE HEART DISEASE
     Route: 048
     Dates: start: 20040212
  8. NOVAMIX [Concomitant]
     Dosage: DRUG; NOVAMIX 30. DOSAGE: 620 AND 480 EVENING.
     Route: 058
     Dates: start: 20070505, end: 20081201
  9. RAMIPRIL [Concomitant]
     Indication: HYPERTENSION
     Route: 048
     Dates: start: 20061016
  10. SIMVASTATIN [Concomitant]
     Route: 048
     Dates: start: 20040920, end: 20081201
  11. SOTALOL HCL [Concomitant]
     Indication: ATRIAL FLUTTER
     Route: 048
     Dates: start: 20080425
  12. WARFARIN SODIUM [Concomitant]
     Indication: ATRIAL FLUTTER
     Route: 048
     Dates: start: 20080307
  13. SALBUTAMOL [Concomitant]
     Dosage: DSOAGE: TWO PUFFS INH.
     Dates: start: 20080722
  14. CLENIL MODULITE [Concomitant]
     Dosage: DOSAGE: TWO PUFFS TWICE DAILY (100 UG).
     Dates: start: 20090123

REACTIONS (3)
  - BLOOD GLUCOSE DECREASED [None]
  - FALL [None]
  - ILL-DEFINED DISORDER [None]
